FAERS Safety Report 7264431-7 (Version None)
Quarter: 2011Q1

REPORT INFORMATION
  Report Type: 
  Country: None (occurrence: None)
  Receive Date: 20110131
  Receipt Date: 20110118
  Transmission Date: 20110831
  Serious: Yes (Other)
  Sender: FDA-Public Use
  Company Number: CN-PAR PHARMACEUTICAL, INC-2011SCPR002650

PATIENT
  Age: 55 Year
  Sex: Female

DRUGS (3)
  1. BETALOC                            /00376902/ [Suspect]
     Indication: HYPERTENSION
     Dosage: 12.5 MG, TID
     Route: 065
     Dates: start: 20080701
  2. SIMVASTATIN [Concomitant]
     Indication: HYPERLIPIDAEMIA
     Dosage: UNK
     Route: 065
  3. CAPOTEN [Suspect]
     Indication: HYPERTENSION
     Dosage: 50 MG, TID
     Route: 048
     Dates: start: 20080701

REACTIONS (3)
  - COUGH [None]
  - SNEEZING [None]
  - GINGIVAL ATROPHY [None]
